FAERS Safety Report 4430780-0 (Version None)
Quarter: 2004Q3

REPORT INFORMATION
  Report Type: 
  Country: None (occurrence: None)
  Receive Date: 20040818
  Receipt Date: 20040810
  Transmission Date: 20050211
  Serious: Yes (Hospitalization)
  Sender: FDA-Public Use
  Company Number: US-JNJFOC-20040803874

PATIENT
  Age: 37 Year
  Sex: Female

DRUGS (1)
  1. ACETAMINOPHEN [Suspect]
     Indication: HEADACHE
     Dosage: 9 G, 1 IN 1 DAY, ORAL
     Route: 048
     Dates: start: 20040810, end: 20040810

REACTIONS (5)
  - DYSPEPSIA [None]
  - LIVER DISORDER [None]
  - NAUSEA [None]
  - OVERDOSE [None]
  - SELF-MEDICATION [None]
